FAERS Safety Report 15540416 (Version 2)
Quarter: 2018Q4

REPORT INFORMATION
  Report Type: Report from Study
  Country: JP (occurrence: JP)
  Receive Date: 20181023
  Receipt Date: 20181220
  Transmission Date: 20190205
  Serious: Yes (Hospitalization)
  Sender: FDA-Public Use
  Company Number: JP-ACTELION-A-CH2018-180448

PATIENT
  Age: 83 Year
  Sex: Female

DRUGS (12)
  1. TRACLEER [Suspect]
     Active Substance: BOSENTAN
     Indication: SCLERODERMA ASSOCIATED DIGITAL ULCER
     Dosage: 125 MG, BID
     Route: 048
     Dates: start: 20151005, end: 20170116
  2. FUROSEMIDE. [Concomitant]
     Active Substance: FUROSEMIDE
  3. MELOXICAM. [Concomitant]
     Active Substance: MELOXICAM
  4. BERAPROST NA [Suspect]
     Active Substance: BERAPROST SODIUM
     Indication: SKIN ULCER
     Dosage: 20 ?G, TID
     Route: 048
     Dates: start: 20110512, end: 20170116
  5. PREDNISOLONE. [Concomitant]
     Active Substance: PREDNISOLONE
  6. EDIROL [Concomitant]
     Active Substance: ELDECALCITOL
  7. BIO-THREE [Concomitant]
     Active Substance: HERBALS
  8. PERSANTINE [Suspect]
     Active Substance: DIPYRIDAMOLE
     Indication: SKIN ULCER
     Dosage: 150 MG, QD
     Route: 048
     Dates: start: 20110512, end: 20170116
  9. NEXIUM [Concomitant]
     Active Substance: ESOMEPRAZOLE MAGNESIUM
  10. AMLODIPINE [Concomitant]
     Active Substance: AMLODIPINE BESYLATE
  11. MICARDIS [Concomitant]
     Active Substance: TELMISARTAN
  12. ALENDRONATE [Concomitant]
     Active Substance: ALENDRONATE SODIUM

REACTIONS (8)
  - Gastrooesophageal reflux disease [Recovered/Resolved]
  - Muscular weakness [Recovered/Resolved]
  - Loss of personal independence in daily activities [Not Recovered/Not Resolved]
  - Haemorrhage [Recovered/Resolved]
  - Concomitant disease aggravated [Recovered/Resolved]
  - General physical health deterioration [Not Recovered/Not Resolved]
  - Anaemia [Recovered/Resolved]
  - Transfusion [Unknown]

NARRATIVE: CASE EVENT DATE: 20170116
